FAERS Safety Report 8914836 (Version 1)
Quarter: 2012Q4

REPORT INFORMATION
  Report Type: 
  Country: JP (occurrence: JP)
  Receive Date: 20121116
  Receipt Date: 20121116
  Transmission Date: 20130627
  Serious: Yes (Other)
  Sender: FDA-Public Use
  Company Number: JP-SANTEN INC.-INC-12-000334

PATIENT
  Sex: Female

DRUGS (3)
  1. CRAVIT (LEVOFLOXACIN 0.5%) [Suspect]
     Indication: INFECTION PROPHYLAXIS
     Route: 061
  2. LIDOCAIN [Concomitant]
     Route: 061
  3. EPINEPHRINE [Concomitant]
     Route: 061

REACTIONS (1)
  - Shock [Recovered/Resolved]
